FAERS Safety Report 25524383 (Version 1)
Quarter: 2025Q3

REPORT INFORMATION
  Report Type: Spontaneous
  Country: US (occurrence: None)
  Receive Date: 20250703
  Receipt Date: 20250703
  Transmission Date: 20251021
  Serious: No
  Sender: FDA-CTU
  Company Number: None

PATIENT
  Age: 48 Year
  Sex: Female
  Weight: 67.95 kg

DRUGS (1)
  1. METFORMIN [Suspect]
     Active Substance: METFORMIN HYDROCHLORIDE
     Indication: Glucose tolerance impaired
     Dosage: FREQUENCY : DAILY;?
     Route: 048
     Dates: start: 20240706, end: 20240720

REACTIONS (2)
  - Gastrointestinal disorder [None]
  - Drug intolerance [None]

NARRATIVE: CASE EVENT DATE: 20240706
